FAERS Safety Report 9577026 (Version 1)
Quarter: 2013Q4

REPORT INFORMATION
  Report Type: Spontaneous
  Country: US (occurrence: US)
  Receive Date: 20131001
  Receipt Date: 20131001
  Transmission Date: 20140711
  Serious: No
  Sender: FDA-Public Use
  Company Number: US-AMGEN-USASP2013005504

PATIENT
  Age: 50 Year
  Sex: Female
  Weight: 92.52 kg

DRUGS (19)
  1. ENBREL [Suspect]
     Indication: PSORIATIC ARTHROPATHY
     Dosage: 50 MG, 2 TIMES/WK
     Route: 058
  2. ENBREL [Suspect]
     Indication: PSORIASIS
  3. DEMADEX                            /01036501/ [Concomitant]
     Dosage: 20 MG, UNK
  4. CLONAZEPAM [Concomitant]
     Dosage: 1 MG, UNK
  5. TIZANIDINE [Concomitant]
     Dosage: 4 MG, UNK
  6. GABAPENTIN [Concomitant]
     Dosage: 600 MG, UNK
  7. CLOBETASOL [Concomitant]
     Dosage: 0.05 %, UNK
  8. VENTOLIN HFA [Concomitant]
     Dosage: UNK
  9. KLOR-CON M20 [Concomitant]
     Dosage: 20 MEQ, UNK
  10. DOXEPIN HCL [Concomitant]
     Dosage: 100 MG, UNK
  11. SEROQUEL [Concomitant]
     Dosage: 100 MG, UNK
  12. CELEXA                             /00582602/ [Concomitant]
     Dosage: 40 MG, UNK
  13. LIDODERM [Concomitant]
     Dosage: 5 %, UNK
  14. SILVADENE [Concomitant]
     Dosage: 1 %, UNK
  15. PERCOCET                           /00446701/ [Concomitant]
     Dosage: 10-325 MG
  16. DUONEB [Concomitant]
     Dosage: UNK
  17. ALORA                              /00045401/ [Concomitant]
     Dosage: 0.1 MG, UNK
  18. ZAROXOLYN [Concomitant]
     Dosage: 2.5 MG, UNK
  19. FENTANYL [Concomitant]
     Dosage: 100 MCG/H, UNK

REACTIONS (2)
  - Drug ineffective [Unknown]
  - Psoriasis [Unknown]
